FAERS Safety Report 25813056 (Version 1)
Quarter: 2025Q3

REPORT INFORMATION
  Report Type: Spontaneous
  Country: US (occurrence: US)
  Receive Date: 20250917
  Receipt Date: 20250917
  Transmission Date: 20251020
  Serious: No
  Sender: GALDERMA
  Company Number: US-GALDERMA-US2025016163

PATIENT

DRUGS (1)
  1. NEMLUVIO [Suspect]
     Active Substance: NEMOLIZUMAB-ILTO
     Indication: Dermatitis atopic
     Route: 058

REACTIONS (12)
  - Alopecia [Unknown]
  - Erythema [Not Recovered/Not Resolved]
  - Skin injury [Unknown]
  - Skin exfoliation [Unknown]
  - Pain [Unknown]
  - Feeling cold [Unknown]
  - Dermatitis atopic [Unknown]
  - Sleep disorder [Unknown]
  - Pyrexia [Unknown]
  - Vomiting [Unknown]
  - Nausea [Unknown]
  - Product dose omission issue [Recovered/Resolved]
